FAERS Safety Report 7228297-3 (Version None)
Quarter: 2011Q1

REPORT INFORMATION
  Report Type: 
  Country: None (occurrence: None)
  Receive Date: 20110114
  Receipt Date: 20110105
  Transmission Date: 20110831
  Serious: Yes (Hospitalization)
  Sender: FDA-Public Use
  Company Number: US-CEPHALON-2011000066

PATIENT
  Age: 47 Year
  Sex: Female

DRUGS (8)
  1. LAMICTAL [Concomitant]
  2. INSULIN [Concomitant]
  3. WELLBUTRIN [Concomitant]
  4. RITALIN [Concomitant]
     Dates: start: 20101110
  5. PAROXETINE HCL [Suspect]
     Indication: DEPRESSION
     Dates: end: 20101101
  6. NUVIGIL [Suspect]
     Indication: NARCOLEPSY
     Route: 048
     Dates: end: 20101223
  7. PRISTIQ [Suspect]
     Indication: DEPRESSION
     Dates: start: 20101128
  8. KLONOPIN [Concomitant]

REACTIONS (8)
  - SUICIDAL IDEATION [None]
  - INDIFFERENCE [None]
  - FLAT AFFECT [None]
  - SOMNOLENCE [None]
  - INSOMNIA [None]
  - THINKING ABNORMAL [None]
  - DIZZINESS [None]
  - FATIGUE [None]
